FAERS Safety Report 5255739-5 (Version None)
Quarter: 2007Q1

REPORT INFORMATION
  Report Type: 
  Country: None (occurrence: None)
  Receive Date: 20070305
  Receipt Date: 20070223
  Transmission Date: 20070707
  Serious: Yes (Hospitalization, Other)
  Sender: FDA-Public Use
  Company Number: BR-PFIZER INC-2007014804

PATIENT
  Age: 49 Year
  Sex: Female

DRUGS (7)
  1. LIPITOR [Suspect]
     Route: 048
  2. LOSARTAN POTASSIUM AND HYDROCHLOROTHIAZIDE [Concomitant]
     Route: 048
  3. SUSTRATE [Concomitant]
     Route: 048
  4. ATENOLOL [Concomitant]
     Route: 048
  5. BROMAZEPAM [Concomitant]
     Route: 048
  6. AMITRIPTYLINE HCL [Concomitant]
     Route: 048
  7. RIVOTRIL [Concomitant]
     Route: 048

REACTIONS (4)
  - BLOOD PRESSURE INCREASED [None]
  - CORONARY ARTERY OCCLUSION [None]
  - HEART RATE INCREASED [None]
  - INTRACRANIAL ANEURYSM [None]
